FAERS Safety Report 8394807-6 (Version None)
Quarter: 2012Q2

REPORT INFORMATION
  Report Type: 
  Country: None (occurrence: None)
  Receive Date: 20120530
  Receipt Date: 20120521
  Transmission Date: 20120825
  Serious: Yes (Hospitalization)
  Sender: FDA-Public Use
  Company Number: US-BRISTOL-MYERS SQUIBB COMPANY-16542482

PATIENT
  Age: 63 Year
  Sex: Male

DRUGS (6)
  1. ZOLOFT [Concomitant]
  2. ASPIRIN [Concomitant]
  3. AMBIEN [Concomitant]
  4. YERVOY [Suspect]
     Indication: MALIGNANT MELANOMA
     Route: 042
     Dates: start: 20120312, end: 20120402
  5. LISINOPRIL [Concomitant]
  6. HYDROCHLOROTHIAZIDE [Concomitant]

REACTIONS (1)
  - ORGANISING PNEUMONIA [None]
